FAERS Safety Report 4299021-1 (Version None)
Quarter: 2004Q1

REPORT INFORMATION
  Report Type: 
  Country: None (occurrence: None)
  Receive Date: 20040217
  Receipt Date: 20040204
  Transmission Date: 20041129
  Serious: Yes (Other)
  Sender: FDA-Public Use
  Company Number: 2004008046

PATIENT
  Age: 11 Year
  Sex: Male
  Weight: 43.9989 kg

DRUGS (1)
  1. ZOLOFT [Suspect]
     Indication: DEPRESSION
     Dosage: 25 MG (DAILY), ORAL
     Route: 048
     Dates: start: 20040109, end: 20040129

REACTIONS (2)
  - DROP ATTACKS [None]
  - STRESS SYMPTOMS [None]
